FAERS Safety Report 24640587 (Version 1)
Quarter: 2024Q4

REPORT INFORMATION
  Report Type: Spontaneous
  Country: FR (occurrence: FR)
  Receive Date: 20241120
  Receipt Date: 20241120
  Transmission Date: 20250115
  Serious: Yes (Hospitalization)
  Sender: SANDOZ
  Company Number: None

PATIENT
  Age: 42 Year
  Sex: Male

DRUGS (2)
  1. MYCOPHENOLATE MOFETIL [Suspect]
     Active Substance: MYCOPHENOLATE MOFETIL
     Indication: Prophylaxis against transplant rejection
     Dosage: 1 G, BID ,12 HR
     Route: 065
  2. AZATHIOPRINE [Concomitant]
     Active Substance: AZATHIOPRINE
     Indication: Prophylaxis against transplant rejection
     Dosage: DISCONTINUED DUE TO CHRONIC ALLOGRAFT NEPHROPATHY.
     Route: 065

REACTIONS (3)
  - Malabsorption [Recovered/Resolved]
  - Normocytic anaemia [Unknown]
  - Intestinal villi atrophy [Recovered/Resolved]
